FAERS Safety Report 18467492 (Version 1)
Quarter: 2020Q4

REPORT INFORMATION
  Report Type: Spontaneous
  Country: CN (occurrence: CN)
  Receive Date: 20201105
  Receipt Date: 20201105
  Transmission Date: 20210114
  Serious: Yes (Hospitalization, Other)
  Sender: FDA-Public Use
  Company Number: CN-009507513-2011CHN000997

PATIENT
  Age: 53 Year
  Sex: Female
  Weight: 48 kg

DRUGS (2)
  1. SODIUM CHLORIDE. [Concomitant]
     Active Substance: SODIUM CHLORIDE
     Indication: CERVIX CARCINOMA
     Dates: start: 20200925, end: 20200925
  2. KEYTRUDA [Suspect]
     Active Substance: PEMBROLIZUMAB
     Indication: CERVIX CARCINOMA
     Dosage: 200MG ONCE
     Dates: start: 20200925, end: 20200925

REACTIONS (11)
  - Fatigue [Recovering/Resolving]
  - Vomiting [Recovered/Resolved]
  - Rash pruritic [Recovering/Resolving]
  - Dry mouth [Recovering/Resolving]
  - Hypochloraemia [Recovering/Resolving]
  - Oedema peripheral [Recovering/Resolving]
  - Oliguria [Recovering/Resolving]
  - Nausea [Recovered/Resolved]
  - Hypocalcaemia [Recovering/Resolving]
  - Decreased appetite [Recovering/Resolving]
  - Hyponatraemia [Recovering/Resolving]

NARRATIVE: CASE EVENT DATE: 20201010
